FAERS Safety Report 9652445 (Version 4)
Quarter: 2013Q4

REPORT INFORMATION
  Report Type: Spontaneous
  Country: DE (occurrence: DE)
  Receive Date: 20131029
  Receipt Date: 20131122
  Transmission Date: 20140711
  Serious: Yes (Hospitalization)
  Sender: FDA-Public Use
  Company Number: DE-UCBSA-097419

PATIENT
  Age: 62 Year
  Sex: Female
  Weight: 52 kg

DRUGS (20)
  1. NEUPRO [Suspect]
     Indication: RHEUMATOID ARTHRITIS
  2. NEUPRO [Suspect]
     Indication: RESTLESS LEGS SYNDROME
  3. NEUPRO [Suspect]
     Indication: RHEUMATOID ARTHRITIS
     Route: 062
     Dates: start: 201305, end: 20130910
  4. NEUPRO [Suspect]
     Indication: RESTLESS LEGS SYNDROME
     Route: 062
     Dates: start: 201305, end: 20130910
  5. LEGANTO [Suspect]
     Dosage: UNKNOWN DOSE
  6. RESTEX [Concomitant]
     Indication: RESTLESS LEGS SYNDROME
     Dosage: 100
     Route: 048
     Dates: start: 20110311
  7. RESTEX [Concomitant]
     Indication: RESTLESS LEGS SYNDROME
     Dosage: 100
     Route: 048
     Dates: start: 20090619
  8. ARAVA [Concomitant]
     Indication: RHEUMATOID ARTHRITIS
     Dates: start: 1992
  9. ARAVA [Concomitant]
     Indication: RESTLESS LEGS SYNDROME
     Dates: start: 1992
  10. ARAVA [Concomitant]
     Indication: RHEUMATOID ARTHRITIS
     Route: 048
     Dates: start: 20130816
  11. ARAVA [Concomitant]
     Indication: RESTLESS LEGS SYNDROME
     Route: 048
     Dates: start: 20130816
  12. CALCIGEN D [Concomitant]
     Indication: OSTEOPOROSIS
     Dosage: 400; DOSE PER INTAKE 800
     Dates: start: 201205
  13. IBUPROFEN [Concomitant]
     Indication: RHEUMATOID ARTHRITIS
     Route: 048
     Dates: start: 20060510
  14. CITALOPRAM [Concomitant]
  15. MORPHINE [Concomitant]
  16. PREDNISONE [Concomitant]
  17. AMITRIPTYLINE [Concomitant]
  18. NEURONTIN [Concomitant]
     Dosage: 100 MG
  19. PANTOZOL [Concomitant]
     Dosage: 40 MG
  20. LACTULOSE [Concomitant]
     Dosage: 3X1 TABLESPOON

REACTIONS (8)
  - Sciatica [Unknown]
  - Bone marrow oedema [Unknown]
  - Haemangioma [Unknown]
  - Drug intolerance [Unknown]
  - Rash [Unknown]
  - Depressed mood [Unknown]
  - Exostosis [Unknown]
  - Dermatitis allergic [Recovering/Resolving]
